FAERS Safety Report 9085704 (Version 1)
Quarter: 2013Q1

REPORT INFORMATION
  Report Type: Spontaneous
  Country: US (occurrence: US)
  Receive Date: 20130130
  Receipt Date: 20130130
  Transmission Date: 20140127
  Serious: No
  Sender: FDA-Public Use
  Company Number: US-ABBOTT-12P-163-0980272-00

PATIENT
  Sex: Male
  Weight: 67.19 kg

DRUGS (4)
  1. HUMIRA [Suspect]
     Indication: OSTEOARTHRITIS
     Dates: start: 20120912
  2. HUMIRA [Suspect]
     Indication: SACROILIITIS
  3. INDOMETHACIN (NON-ABBOTT) [Concomitant]
     Indication: OSTEOARTHRITIS
  4. INDOMETHACIN (NON-ABBOTT) [Concomitant]
     Indication: SACROILIITIS

REACTIONS (2)
  - Off label use [Not Recovered/Not Resolved]
  - Sacroiliitis [Not Recovered/Not Resolved]
